FAERS Safety Report 5638563-0 (Version None)
Quarter: 2008Q1

REPORT INFORMATION
  Report Type: 
  Country: None (occurrence: None)
  Receive Date: 20080226
  Receipt Date: 20070507
  Transmission Date: 20080703
  Serious: No
  Sender: FDA-Public Use
  Company Number: A0648902A

PATIENT
  Age: 33 Year
  Sex: Female

DRUGS (6)
  1. IMITREX [Suspect]
     Indication: MIGRAINE
     Dosage: 6MG AS REQUIRED
     Route: 042
     Dates: start: 20070426
  2. ATIVAN [Concomitant]
  3. ZESTRIL [Concomitant]
  4. PRILOSEC [Concomitant]
  5. REGLAN [Concomitant]
  6. STADOL [Concomitant]

REACTIONS (2)
  - FEELING ABNORMAL [None]
  - INCORRECT ROUTE OF DRUG ADMINISTRATION [None]
